FAERS Safety Report 4679079-8 (Version None)
Quarter: 2005Q2

REPORT INFORMATION
  Report Type: 
  Country: None (occurrence: None)
  Receive Date: 20050527
  Receipt Date: 20050411
  Transmission Date: 20051028
  Serious: No
  Sender: FDA-Public Use
  Company Number: PHEH2005US04230

PATIENT
  Age: 24 Year
  Sex: Female

DRUGS (1)
  1. ZELNORM [Suspect]
     Indication: IRRITABLE BOWEL SYNDROME
     Dates: start: 20040801

REACTIONS (3)
  - DIZZINESS [None]
  - STOMACH DISCOMFORT [None]
  - WEIGHT DECREASED [None]
